FAERS Safety Report 5414465-X (Version None)
Quarter: 2007Q3

REPORT INFORMATION
  Report Type: 
  Country: None (occurrence: None)
  Receive Date: 20070731
  Receipt Date: 20070524
  Transmission Date: 20080115
  Serious: No
  Sender: FDA-Public Use
  Company Number: US200705006590

PATIENT
  Age: 36 Year
  Sex: Female
  Weight: 226.8 kg

DRUGS (5)
  1. BYETTA [Suspect]
     Indication: TYPE 2 DIABETES MELLITUS
     Dosage: 5 UG, 2/D, SUBCUTANEOUS
     Route: 058
     Dates: start: 20070401
  2. METFORMIN HCL [Concomitant]
  3. ACTOS [Concomitant]
  4. CAPTOPRIL [Concomitant]
  5. ALBUTEROL [Concomitant]

REACTIONS (4)
  - BLOOD GLUCOSE INCREASED [None]
  - DYSPNOEA [None]
  - MENSTRUATION IRREGULAR [None]
  - THROAT IRRITATION [None]
